FAERS Safety Report 18918693 (Version 7)
Quarter: 2021Q2

REPORT INFORMATION
  Report Type: Report from Study
  Country: DE (occurrence: DE)
  Receive Date: 20210220
  Receipt Date: 20210618
  Transmission Date: 20210717
  Serious: Yes (Other)
  Sender: FDA-Public Use
  Company Number: DE-ROCHE-2768449

PATIENT
  Age: 83 Year
  Sex: Male
  Weight: 72 kg

DRUGS (16)
  1. PRAMIPEXOLE. [Concomitant]
     Active Substance: PRAMIPEXOLE
  2. PANTHENOL [Concomitant]
     Active Substance: PANTHENOL
  3. PANTOPRAZOLE [Concomitant]
     Active Substance: PANTOPRAZOLE
  4. ATORVASTATIN [Concomitant]
     Active Substance: ATORVASTATIN
  5. NOVALGIN (METAMIZOLE SODIUM) [Concomitant]
     Active Substance: METAMIZOLE SODIUM
  6. ASPIRIN. [Concomitant]
     Active Substance: ASPIRIN
  7. UREA. [Concomitant]
     Active Substance: UREA
  8. ATEZOLIZUMAB. [Suspect]
     Active Substance: ATEZOLIZUMAB
     Indication: TRANSITIONAL CELL CARCINOMA
     Dosage: DATE OF MOST RECENT DOSE OF ATEZOLIZUMAB PRIOR TO AE 05/JAN/2021
     Route: 041
     Dates: start: 20191219, end: 20210112
  9. PREDNISOLONE. [Concomitant]
     Active Substance: PREDNISOLONE
  10. HYDROGEN PEROXIDE. [Concomitant]
     Active Substance: HYDROGEN PEROXIDE
  11. CLOBETASOL [Concomitant]
     Active Substance: CLOBETASOL
  12. XL184 [Suspect]
     Active Substance: CABOZANTINIB
     Indication: TRANSITIONAL CELL CARCINOMA
     Dosage: ORALLY DAILY AT DOSE LEVELS OF 20 MG, 40 MG, OR 60 MG.?DATE OF MOST RECENT DOSE OF CARBOZANTINIB PRI
     Route: 048
     Dates: start: 20191219, end: 20210112
  13. AMLODIPINE [Concomitant]
     Active Substance: AMLODIPINE BESYLATE
  14. TRAMADOL. [Concomitant]
     Active Substance: TRAMADOL
  15. VALSACOR [Concomitant]
     Active Substance: VALSARTAN
  16. CLOPIDOGREL [Concomitant]
     Active Substance: CLOPIDOGREL BISULFATE

REACTIONS (1)
  - Transaminases increased [Not Recovered/Not Resolved]

NARRATIVE: CASE EVENT DATE: 20210104
